FAERS Safety Report 21897265 (Version 1)
Quarter: 2023Q1

REPORT INFORMATION
  Report Type: Spontaneous
  Country: US (occurrence: None)
  Receive Date: 20230120
  Receipt Date: 20230120
  Transmission Date: 20230417
  Serious: Yes (Hospitalization)
  Sender: FDA-Public Use
  Company Number: None

PATIENT
  Age: 72 Year
  Sex: Female

DRUGS (21)
  1. AMBRISENTAN [Suspect]
     Active Substance: AMBRISENTAN
     Indication: Pulmonary hypertension
     Dates: start: 20100218
  2. SILDENAFIL [Concomitant]
     Active Substance: SILDENAFIL
  3. TREPROSTINIL [Concomitant]
     Active Substance: TREPROSTINIL
  4. WARFARIN [Concomitant]
     Active Substance: WARFARIN
  5. BUMETANIDE [Concomitant]
     Active Substance: BUMETANIDE
  6. SPIRONOLACTONE [Concomitant]
     Active Substance: SPIRONOLACTONE
  7. LANSOPRAZOLE [Concomitant]
     Active Substance: LANSOPRAZOLE
  8. ONDANSETRON [Concomitant]
     Active Substance: ONDANSETRON
  9. DIGOXIN [Concomitant]
     Active Substance: DIGOXIN
  10. ALBUTEROL SULFATE [Concomitant]
     Active Substance: ALBUTEROL SULFATE
  11. AMLODIPINE [Concomitant]
     Active Substance: AMLODIPINE BESYLATE
  12. DILTIAZEM [Concomitant]
     Active Substance: DILTIAZEM
  13. VITAMINS [Concomitant]
     Active Substance: VITAMINS
  14. VITAMIN D3 [Concomitant]
     Active Substance: CHOLECALCIFEROL
  15. VITAMIN C WITH ROSE HIPS [Concomitant]
  16. DOCUSATE SODIUM [Concomitant]
     Active Substance: DOCUSATE SODIUM
  17. SIMETHICONE (DIMETHICONE) [Concomitant]
     Active Substance: DIMETHICONE
  18. CALCIUM CARBONATE [Concomitant]
     Active Substance: CALCIUM CARBONATE
  19. TYLENOL [Concomitant]
     Active Substance: ACETAMINOPHEN
  20. FLONASE [Concomitant]
     Active Substance: FLUTICASONE PROPIONATE
  21. LACTULOSE [Concomitant]
     Active Substance: LACTULOSE

REACTIONS (4)
  - Hypervolaemia [None]
  - Acute respiratory failure [None]
  - Pulmonary hypertension [None]
  - Cellulitis [None]

NARRATIVE: CASE EVENT DATE: 20230117
